FAERS Safety Report 4466698-7 (Version None)
Quarter: 2004Q4

REPORT INFORMATION
  Report Type: 
  Country: None (occurrence: None)
  Receive Date: 20041001
  Receipt Date: 20041001
  Transmission Date: 20050328
  Serious: Yes (Other)
  Sender: FDA-Public Use
  Company Number: None

PATIENT
  Age: 32 Year
  Sex: Male
  Weight: 85 kg

DRUGS (1)
  1. VIOXX [Suspect]
     Indication: PAIN
     Dosage: 1 1 A DAY ORAL
     Route: 048
     Dates: start: 20040202, end: 20040205

REACTIONS (4)
  - ASTHENIA [None]
  - FEELING HOT [None]
  - HEADACHE [None]
  - NASOPHARYNGITIS [None]
